FAERS Safety Report 7492354-7 (Version None)
Quarter: 2011Q2

REPORT INFORMATION
  Report Type: 
  Country: None (occurrence: None)
  Receive Date: 20110519
  Receipt Date: 20110509
  Transmission Date: 20111010
  Serious: Yes (Other)
  Sender: FDA-Public Use
  Company Number: US-SANOFI-AVENTIS-2011SA029678

PATIENT
  Age: 66 Year
  Sex: Female

DRUGS (2)
  1. APIDRA [Suspect]
     Dosage: DOSE:55 UNIT(S)
     Route: 058
  2. APIDRA [Suspect]
     Indication: DIABETES MELLITUS
     Route: 058
     Dates: start: 20090404

REACTIONS (4)
  - PAIN IN EXTREMITY [None]
  - MALAISE [None]
  - CATARACT OPERATION [None]
  - ROAD TRAFFIC ACCIDENT [None]
